FAERS Safety Report 6941949-5 (Version None)
Quarter: 2010Q3

REPORT INFORMATION
  Report Type: 
  Country: None (occurrence: None)
  Receive Date: 20100826
  Receipt Date: 20100816
  Transmission Date: 20110219
  Serious: Yes (Hospitalization)
  Sender: FDA-Public Use
  Company Number: US-JNJFOC-20100807041

PATIENT
  Sex: Male
  Weight: 82.3 kg

DRUGS (3)
  1. INFLIXIMAB, RECOMBINANT [Suspect]
     Indication: CROHN'S DISEASE
  2. AZATHIOPRINE [Concomitant]
  3. CIMZIA [Concomitant]

REACTIONS (1)
  - CROHN'S DISEASE [None]
